FAERS Safety Report 10802608 (Version 1)
Quarter: 2015Q1

REPORT INFORMATION
  Report Type: Spontaneous
  Country: US (occurrence: US)
  Receive Date: 20150217
  Receipt Date: 20150217
  Transmission Date: 20150721
  Serious: No
  Sender: FDA-Public Use
  Company Number: US-BRACCO-010483

PATIENT

DRUGS (1)
  1. ISOVUE-M [Suspect]
     Active Substance: IOPAMIDOL
     Indication: ENDOSCOPIC RETROGRADE CHOLANGIOPANCREATOGRAPHY
     Dosage: ADMINISTERED INTO COMMON BILE DUCT VIA CATHETER
     Route: 050

REACTIONS (3)
  - Off label use [Unknown]
  - Wrong drug administered [Unknown]
  - No adverse event [Unknown]
